FAERS Safety Report 8152571-X (Version None)
Quarter: 2012Q1

REPORT INFORMATION
  Report Type: 
  Country: None (occurrence: None)
  Receive Date: 20120221
  Receipt Date: 20120213
  Transmission Date: 20120608
  Serious: Yes (Hospitalization)
  Sender: FDA-Public Use
  Company Number: PHHY2012EC014136

PATIENT
  Sex: Female

DRUGS (1)
  1. GENTEAL [Suspect]
     Route: 047
     Dates: start: 20101111

REACTIONS (3)
  - ACUTE TONSILLITIS [None]
  - INFLUENZA [None]
  - PYREXIA [None]
